FAERS Safety Report 21063456 (Version 1)
Quarter: 2022Q3

REPORT INFORMATION
  Report Type: Report from Study
  Country: EG (occurrence: EG)
  Receive Date: 20220711
  Receipt Date: 20220711
  Transmission Date: 20221026
  Serious: Yes (Other)
  Sender: FDA-Public Use
  Company Number: EG-NOVARTISPH-NVSC2022EG148928

PATIENT
  Age: 51 Year
  Sex: Female

DRUGS (3)
  1. AFINITOR [Suspect]
     Active Substance: EVEROLIMUS
     Indication: Malignant neoplasm of pleura
     Dosage: 5 MG, QD
     Route: 048
     Dates: start: 20220620
  2. VALSARTAN [Concomitant]
     Active Substance: VALSARTAN
     Indication: Prophylaxis
     Dosage: 1 DOSAGE FORM, QD (40)
     Route: 065
     Dates: start: 202001
  3. CRESTOR [Concomitant]
     Active Substance: ROSUVASTATIN CALCIUM
     Indication: Prophylaxis
     Dosage: 1 DOSAGE FORM, QD
     Route: 065
     Dates: start: 202001

REACTIONS (6)
  - Headache [Not Recovered/Not Resolved]
  - Bone pain [Not Recovered/Not Resolved]
  - Balance disorder [Not Recovered/Not Resolved]
  - Asthma [Unknown]
  - Fatigue [Unknown]
  - Off label use [Unknown]

NARRATIVE: CASE EVENT DATE: 20220620
